FAERS Safety Report 24586069 (Version 1)
Quarter: 2024Q4

REPORT INFORMATION
  Report Type: Spontaneous
  Country: US (occurrence: US)
  Receive Date: 20241106
  Receipt Date: 20241106
  Transmission Date: 20250115
  Serious: No
  Sender: Haleon PLC
  Company Number: US-HALEON-2206942

PATIENT

DRUGS (1)
  1. SENSODYNE PRONAMEL INTENSIVE ENAMEL REPAIR EXTRA FRESH [Suspect]
     Active Substance: POTASSIUM NITRATE\SODIUM FLUORIDE
     Indication: Product used for unknown indication
     Dosage: EXPDATE:20260103

REACTIONS (1)
  - Drug ineffective [Unknown]
